FAERS Safety Report 16010466 (Version 3)
Quarter: 2019Q3

REPORT INFORMATION
  Report Type: Report from Study
  Country: US (occurrence: US)
  Receive Date: 20190225
  Receipt Date: 20190823
  Transmission Date: 20191004
  Serious: No
  Sender: FDA-Public Use
  Company Number: PHEH2019US008064

PATIENT
  Sex: Male

DRUGS (2)
  1. COSENTYX [Suspect]
     Active Substance: SECUKINUMAB
     Indication: PSORIATIC ARTHROPATHY
  2. COSENTYX [Suspect]
     Active Substance: SECUKINUMAB
     Indication: PSORIASIS
     Dosage: 300 MG,(Q WEEK X 5 WEEKS AND THEN Q 4 WEEKS)
     Route: 058
     Dates: start: 20181227

REACTIONS (4)
  - Fatigue [Unknown]
  - Pain [Not Recovered/Not Resolved]
  - Sinusitis [Unknown]
  - Asthenia [Unknown]
